FAERS Safety Report 15441389 (Version 1)
Quarter: 2018Q3

REPORT INFORMATION
  Report Type: Spontaneous
  Country: US (occurrence: US)
  Receive Date: 20180928
  Receipt Date: 20180928
  Transmission Date: 20181010
  Serious: No
  Sender: FDA-Public Use
  Company Number: US-LEXICON PHARMACEUTICALS, INC-18-1606-01093

PATIENT
  Sex: Male

DRUGS (18)
  1. QUESTRAN [Concomitant]
     Active Substance: CHOLESTYRAMINE
  2. FIBER [Concomitant]
     Active Substance: PSYLLIUM HUSK
  3. DIPHENOXYLATE?ATROPINE [Concomitant]
     Active Substance: ATROPINE\DIPHENOXYLATE
  4. ZOFRAN [Concomitant]
     Active Substance: ONDANSETRON HYDROCHLORIDE
  5. MEGACE ORAL SUS [Concomitant]
  6. SIMETHICONE (DIMETHICONE) [Concomitant]
     Active Substance: DIMETHICONE
  7. MULTIVITAMIN [Concomitant]
     Active Substance: VITAMINS
  8. K?PHOS [Concomitant]
     Active Substance: POTASSIUM PHOSPHATE, MONOBASIC
  9. MELATONIN [Concomitant]
     Active Substance: MELATONIN
  10. TYLENOL [Concomitant]
     Active Substance: ACETAMINOPHEN
  11. OMEGA3 [Concomitant]
  12. TELOTRISTAT ETHYL [Suspect]
     Active Substance: TELOTRISTAT ETHYL
     Indication: CARCINOID TUMOUR
     Route: 048
     Dates: start: 20170422
  13. BELLADONNA?OPIUM [Concomitant]
  14. CREON [Concomitant]
     Active Substance: PANCRELIPASE AMYLASE\PANCRELIPASE LIPASE\PANCRELIPASE PROTEASE
  15. METAMUCIL [Concomitant]
     Active Substance: PLANTAGO SEED
  16. SANDOSTATIN [Concomitant]
     Active Substance: OCTREOTIDE ACETATE
  17. LOPERAMIDE [Concomitant]
     Active Substance: LOPERAMIDE
  18. ROXICODONE [Concomitant]
     Active Substance: OXYCODONE HYDROCHLORIDE

REACTIONS (1)
  - Blood pressure increased [Not Recovered/Not Resolved]
